FAERS Safety Report 19125124 (Version 3)
Quarter: 2021Q2

REPORT INFORMATION
  Report Type: Report from Study
  Country: US (occurrence: US)
  Receive Date: 20210413
  Receipt Date: 20210414
  Transmission Date: 20210717
  Serious: Yes (Life-Threatening, Other)
  Sender: FDA-Public Use
  Company Number: US-SUNOVION-2021SUN001104

PATIENT
  Sex: Female
  Weight: 70.75 kg

DRUGS (3)
  1. KYNMOBI [Suspect]
     Active Substance: APOMORPHINE HYDROCHLORIDE
     Dosage: 10 MG, SINGLE
     Route: 060
     Dates: start: 20210323, end: 20210323
  2. KYNMOBI [Suspect]
     Active Substance: APOMORPHINE HYDROCHLORIDE
     Indication: PARKINSON^S DISEASE
     Dosage: 15 MG, SINGLE
     Route: 060
     Dates: start: 20210323, end: 20210323
  3. TIGAN [Concomitant]
     Active Substance: TRIMETHOBENZAMIDE HYDROCHLORIDE
     Indication: NAUSEA
     Dosage: UNK UNK, TID
     Route: 065
     Dates: start: 20210320, end: 20210325

REACTIONS (4)
  - Pallor [Recovered/Resolved]
  - Lethargy [Recovered/Resolved]
  - Blood pressure decreased [Recovered/Resolved]
  - Vomiting [Recovered/Resolved]
